FAERS Safety Report 4350758-5 (Version None)
Quarter: 2004Q2

REPORT INFORMATION
  Report Type: 
  Country: None (occurrence: None)
  Receive Date: 20040427
  Receipt Date: 20040414
  Transmission Date: 20050107
  Serious: Yes (Hospitalization, Other)
  Sender: FDA-Public Use
  Company Number: 2004025316

PATIENT
  Age: 42 Year
  Sex: Female

DRUGS (4)
  1. NEURONTIN [Suspect]
     Indication: PAIN
     Dosage: ORAL
     Route: 048
     Dates: start: 20030101
  2. AMITRIPTYLINE HYDROCHLORIDE [Concomitant]
  3. CARISOPRODOL [Concomitant]
  4. VICODIN [Concomitant]

REACTIONS (2)
  - DEPRESSION [None]
  - INTENTIONAL OVERDOSE [None]
